FAERS Safety Report 15124734 (Version 1)
Quarter: 2018Q3

REPORT INFORMATION
  Report Type: Spontaneous
  Country: US (occurrence: US)
  Receive Date: 20180613
  Receipt Date: 20180613
  Transmission Date: 20181010
  Serious: Yes (Other)
  Sender: FDA-Public Use
  Company Number: None

PATIENT
  Age: 59 Year
  Sex: Female

DRUGS (10)
  1. MULTI [Concomitant]
  2. AMINO ACID THERAPY [Concomitant]
  3. TRAMADOL. [Concomitant]
     Active Substance: TRAMADOL
  4. VITAMIN B COMPLEX [Concomitant]
     Active Substance: CYANOCOBALAMIN\DEXPANTHENOL\NIACINAMIDE\PYRIDOXINE HYDROCHLORIDE\RIBOFLAVIN 5^-PHOSPHATE SODIUM\THIAMINE HYDROCHLORIDE\VITAMIN B COMPLEX
  5. GABAPENTIN. [Suspect]
     Active Substance: GABAPENTIN
     Indication: NEURALGIA
     Route: 048
     Dates: start: 20171015, end: 20171215
  6. CYMBALTA [Concomitant]
     Active Substance: DULOXETINE HYDROCHLORIDE
  7. FISH OIL [Concomitant]
     Active Substance: FISH OIL
  8. PROBIOTIC [Concomitant]
     Active Substance: PROBIOTICS NOS
  9. MAGNESIUM [Concomitant]
     Active Substance: MAGNESIUM
  10. LIPITOR [Concomitant]
     Active Substance: ATORVASTATIN CALCIUM

REACTIONS (12)
  - Palpitations [None]
  - Quality of life decreased [None]
  - Decreased activity [None]
  - Suicidal ideation [None]
  - Heart rate increased [None]
  - Panic attack [None]
  - Anxiety [None]
  - Pulmonary congestion [None]
  - Head discomfort [None]
  - Withdrawal syndrome [None]
  - Depression [None]
  - Anhedonia [None]
